FAERS Safety Report 6764577-3 (Version None)
Quarter: 2010Q2

REPORT INFORMATION
  Report Type: 
  Country: None (occurrence: None)
  Receive Date: 20100610
  Receipt Date: 20100311
  Transmission Date: 20101027
  Serious: No
  Sender: FDA-Public Use
  Company Number: US-TYCO HEALTHCARE/MALLINCKRODT-T201000910

PATIENT
  Sex: Female

DRUGS (1)
  1. OCTREOSCAN [Suspect]
     Dosage: UNK
     Dates: start: 20100310, end: 20100310

REACTIONS (2)
  - HEART RATE INCREASED [None]
  - PALPITATIONS [None]
